FAERS Safety Report 13017292 (Version 1)
Quarter: 2016Q4

REPORT INFORMATION
  Report Type: Spontaneous
  Country: US (occurrence: US)
  Receive Date: 20161209
  Receipt Date: 20161209
  Transmission Date: 20170207
  Serious: Yes (Hospitalization)
  Sender: FDA-Public Use
  Company Number: None

PATIENT
  Age: 57 Year
  Sex: Female

DRUGS (1)
  1. TETRABENAZINE 12.5 MG SUN [Suspect]
     Active Substance: TETRABENAZINE
     Indication: HUNTINGTON^S DISEASE
     Route: 048
     Dates: start: 20161207, end: 20161208

REACTIONS (2)
  - Product substitution issue [None]
  - Hospitalisation [None]

NARRATIVE: CASE EVENT DATE: 20161207
